FAERS Safety Report 11357710 (Version 1)
Quarter: 2015Q3

REPORT INFORMATION
  Report Type: Spontaneous
  Country: US (occurrence: US)
  Receive Date: 20150803
  Receipt Date: 20150803
  Transmission Date: 20151125
  Serious: No
  Sender: FDA-Public Use
  Company Number: US-ELI_LILLY_AND_COMPANY-US201202008060

PATIENT
  Age: 55 Year
  Sex: Male

DRUGS (1)
  1. ZYPREXA [Suspect]
     Active Substance: OLANZAPINE
     Indication: SCHIZOAFFECTIVE DISORDER BIPOLAR TYPE
     Dosage: 10 MG, EACH EVENING

REACTIONS (15)
  - Hypertension [Unknown]
  - Irritability [Unknown]
  - Asthenia [Unknown]
  - Blood glucose increased [Unknown]
  - Blood cholesterol increased [Unknown]
  - Sweat gland disorder [Unknown]
  - Feeling hot [Unknown]
  - Weight increased [Unknown]
  - Sleep disorder [Unknown]
  - Somnolence [Unknown]
  - Hypersomnia [Unknown]
  - Thirst [Unknown]
  - Dry mouth [Unknown]
  - Increased appetite [Unknown]
  - Blood triglycerides increased [Unknown]
